FAERS Safety Report 5975968-2 (Version None)
Quarter: 2008Q4

REPORT INFORMATION
  Report Type: 
  Country: None (occurrence: None)
  Receive Date: 20081202
  Receipt Date: 20081120
  Transmission Date: 20090506
  Serious: Yes (Other)
  Sender: FDA-Public Use
  Company Number: PHHO2008TR13814

PATIENT
  Sex: Male
  Weight: 84 kg

DRUGS (3)
  1. TASIGNA [Suspect]
     Indication: METASTASES TO LIVER
     Dosage: 400 MG, BID
     Route: 048
     Dates: start: 20080728
  2. TASIGNA [Suspect]
     Dosage: 400 MG, QD
     Route: 048
  3. TASIGNA [Suspect]
     Dosage: 200 MG,
     Route: 048

REACTIONS (2)
  - FATIGUE [None]
  - GAIT DISTURBANCE [None]
